FAERS Safety Report 15617647 (Version 2)
Quarter: 2018Q4

REPORT INFORMATION
  Report Type: Spontaneous
  Country: GB (occurrence: GB)
  Receive Date: 20181114
  Receipt Date: 20181207
  Transmission Date: 20190205
  Serious: Yes (Other)
  Sender: FDA-Public Use
  Company Number: GB-AMGEN-GBRSP2018158046

PATIENT
  Age: 0 Day
  Sex: Female

DRUGS (3)
  1. ARANESP [Suspect]
     Active Substance: DARBEPOETIN ALFA
     Dosage: 40 MUG, QWK
     Route: 064
     Dates: start: 20160104, end: 20160301
  2. ARANESP [Suspect]
     Active Substance: DARBEPOETIN ALFA
     Dosage: 50 MUG, QWK
     Route: 064
     Dates: start: 20160301
  3. ARANESP [Suspect]
     Active Substance: DARBEPOETIN ALFA
     Indication: EXPOSURE DURING PREGNANCY
     Dosage: 30 MUG, QWK
     Route: 064
     Dates: start: 20150803, end: 20160104

REACTIONS (1)
  - Premature baby [Unknown]

NARRATIVE: CASE EVENT DATE: 20160323
